FAERS Safety Report 19055610 (Version 1)
Quarter: 2021Q1

REPORT INFORMATION
  Report Type: Spontaneous
  Country: US (occurrence: US)
  Receive Date: 20210325
  Receipt Date: 20210325
  Transmission Date: 20210420
  Serious: Yes (Other)
  Sender: FDA-Public Use
  Company Number: US-STRIDES ARCOLAB LIMITED-2020SP013531

PATIENT
  Age: 39 Year
  Sex: Female

DRUGS (2)
  1. METRONIDAZOLE. [Suspect]
     Active Substance: METRONIDAZOLE
     Dosage: UNK
     Route: 065
  2. METRONIDAZOLE. [Suspect]
     Active Substance: METRONIDAZOLE
     Indication: TRICHOMONIASIS
     Dosage: UNK
     Route: 065

REACTIONS (8)
  - Pharyngeal swelling [Recovered/Resolved]
  - Conjunctival hyperaemia [Recovered/Resolved]
  - Epidermal necrosis [Recovered/Resolved]
  - Type I hypersensitivity [Recovered/Resolved]
  - Vulvovaginal pruritus [Recovered/Resolved]
  - Stevens-Johnson syndrome [Recovered/Resolved]
  - Rash vesicular [Recovered/Resolved]
  - Urticaria [Recovered/Resolved]
